FAERS Safety Report 7623746-0 (Version None)
Quarter: 2011Q3

REPORT INFORMATION
  Report Type: 
  Country: None (occurrence: None)
  Receive Date: 20110720
  Receipt Date: 20110713
  Transmission Date: 20111222
  Serious: Yes (Other)
  Sender: FDA-Public Use
  Company Number: BE-GLAXOSMITHKLINE-B0702244A

PATIENT
  Sex: Male
  Weight: 72.3 kg

DRUGS (3)
  1. PREDNISONE [Suspect]
     Indication: MULTIPLE MYELOMA
     Dosage: 2MGK CYCLIC
     Route: 048
     Dates: start: 20070625, end: 20080205
  2. MELPHALAN HYDROCHLORIDE [Suspect]
     Indication: MULTIPLE MYELOMA
     Dosage: .18MGK CYCLIC
     Route: 048
     Dates: start: 20070625, end: 20080205
  3. LENALIDOMIDE [Suspect]
     Indication: MULTIPLE MYELOMA
     Route: 048
     Dates: start: 20070625, end: 20100610

REACTIONS (1)
  - TRANSITIONAL CELL CARCINOMA [None]
